FAERS Safety Report 20044290 (Version 1)
Quarter: 2021Q4

REPORT INFORMATION
  Report Type: Spontaneous
  Country: SE (occurrence: SE)
  Receive Date: 20211108
  Receipt Date: 20211108
  Transmission Date: 20220303
  Serious: Yes (Disabling)
  Sender: FDA-Public Use
  Company Number: None

PATIENT
  Age: 5 Year
  Sex: Female
  Weight: 28 kg

DRUGS (1)
  1. ENTYVIO [Suspect]
     Active Substance: VEDOLIZUMAB
     Indication: Colitis ulcerative
     Dosage: 5 MICROGRAM/KILOGRAM, Q4WEEKS
     Route: 042
     Dates: start: 20180427, end: 20190617

REACTIONS (1)
  - Tubulointerstitial nephritis [Recovered/Resolved with Sequelae]

NARRATIVE: CASE EVENT DATE: 20180701
